FAERS Safety Report 14039359 (Version 1)
Quarter: 2017Q4

REPORT INFORMATION
  Report Type: Report from Study
  Country: CO (occurrence: CO)
  Receive Date: 20171004
  Receipt Date: 20171004
  Transmission Date: 20180321
  Serious: Yes (Hospitalization, Other)
  Sender: FDA-Public Use
  Company Number: CO-ELI_LILLY_AND_COMPANY-CO201708008238

PATIENT
  Age: 62 Year
  Sex: Male

DRUGS (1)
  1. CETUXIMAB. [Suspect]
     Active Substance: CETUXIMAB
     Indication: SQUAMOUS CELL CARCINOMA OF HEAD AND NECK
     Dosage: 400 MG, MONTHLY (1/M)
     Route: 042
     Dates: start: 20170601

REACTIONS (7)
  - Cellulitis [Unknown]
  - Skin ulcer [Unknown]
  - Scar [Unknown]
  - Off label use [Unknown]
  - Secretion discharge [Unknown]
  - Skin lesion [Unknown]
  - Aphasia [Unknown]

NARRATIVE: CASE EVENT DATE: 2017
